FAERS Safety Report 9427765 (Version 1)
Quarter: 2013Q3

REPORT INFORMATION
  Report Type: Spontaneous
  Country: US (occurrence: None)
  Receive Date: 20130729
  Receipt Date: 20130729
  Transmission Date: 20140515
  Serious: Yes (Other)
  Sender: FDA-Public Use
  Company Number: None

PATIENT
  Age: 64 Year
  Sex: Male
  Weight: 77.11 kg

DRUGS (8)
  1. SIMVASTATIN [Suspect]
     Indication: BLOOD CHOLESTEROL ABNORMAL
     Route: 048
     Dates: start: 20110601
  2. NOVOLOG VIA PUMP [Concomitant]
  3. ADVAIR 500/50 [Concomitant]
  4. NASACORT NASAL SPRAY [Concomitant]
  5. VITAMIN B COMPLEX [Concomitant]
  6. ASPIRIN [Concomitant]
  7. VITAMIN C [Concomitant]
  8. FISH OIL [Concomitant]

REACTIONS (1)
  - Tendon pain [None]
